FAERS Safety Report 16549005 (Version 3)
Quarter: 2019Q3

REPORT INFORMATION
  Report Type: Report from Study
  Country: US (occurrence: US)
  Receive Date: 20190709
  Receipt Date: 20190903
  Transmission Date: 20191004
  Serious: Yes (Death)
  Sender: FDA-Public Use
  Company Number: US-ACTELION-A-US2019-192546

PATIENT
  Age: 70 Year
  Sex: Male

DRUGS (10)
  1. SILDENAFIL. [Concomitant]
     Active Substance: SILDENAFIL
     Dosage: 20 MG
  2. XANAX [Concomitant]
     Active Substance: ALPRAZOLAM
     Dosage: 0.5 MG
  3. ALPRAZOLAM. [Concomitant]
     Active Substance: ALPRAZOLAM
  4. TORSEMIDE. [Concomitant]
     Active Substance: TORSEMIDE
     Dosage: 40 MG
  5. ELIQUIS [Concomitant]
     Active Substance: APIXABAN
     Dosage: 5 MG
  6. LEVOTHYROXINE. [Concomitant]
     Active Substance: LEVOTHYROXINE
     Dosage: 88 MCG
  7. ALDACTONE [Concomitant]
     Active Substance: SPIRONOLACTONE
     Dosage: 25 MG
  8. ALLOPURINOL. [Concomitant]
     Active Substance: ALLOPURINOL
     Dosage: 300 MG
  9. OPSUMIT [Suspect]
     Active Substance: MACITENTAN
     Indication: PULMONARY ARTERIAL HYPERTENSION
     Dosage: 10 MG, QD
     Route: 048
     Dates: start: 20190209, end: 20190425
  10. PRAVASTATIN. [Concomitant]
     Active Substance: PRAVASTATIN
     Dosage: 20 MG

REACTIONS (2)
  - Pain [Unknown]
  - Death [Fatal]

NARRATIVE: CASE EVENT DATE: 20190425
